FAERS Safety Report 8780183 (Version 1)
Quarter: 2012Q4

REPORT INFORMATION
  Report Type: Spontaneous
  Country: GB (occurrence: None)
  Receive Date: 20120829
  Receipt Date: 20120829
  Transmission Date: 20130627
  Serious: Yes (Hospitalization)
  Sender: FDA-Public Use
  Company Number: 2012-01265

PATIENT
  Age: 32 Year
  Sex: Female

DRUGS (2)
  1. QUETIAPINE [Suspect]
     Indication: BORDERLINE PERSONALITY DISORDER
     Route: 048
     Dates: start: 201205
  2. QUETIAPINE [Suspect]
     Indication: EMOTIONAL INSTABILITY
     Route: 048
     Dates: start: 201205

REACTIONS (1)
  - Hemiplegic migraine [None]
